FAERS Safety Report 20340733 (Version 1)
Quarter: 2022Q1

REPORT INFORMATION
  Report Type: Spontaneous
  Country: IN (occurrence: IN)
  Receive Date: 20220117
  Receipt Date: 20220117
  Transmission Date: 20220423
  Serious: Yes (Other)
  Sender: FDA-Public Use
  Company Number: IN-PFIZER INC-2018524649

PATIENT
  Age: 53 Year
  Sex: Male

DRUGS (4)
  1. SUTENT [Suspect]
     Active Substance: SUNITINIB MALATE
     Indication: Metastatic renal cell carcinoma
     Dosage: 50 MG, CYCLIC (ONCE A DAY, 2 WEEKS ON + 1 WEEK OFF)
     Route: 048
     Dates: start: 20181220
  2. SUTENT [Suspect]
     Active Substance: SUNITINIB MALATE
     Dosage: 50 MG, CYCLIC (ONCE A DAY, 14 DAY FOLLOWED BY A BREAK OF 7 DAYS AND THEN REPEAT)
     Route: 048
     Dates: end: 2021
  3. NEKSIUM [Concomitant]
     Dosage: 40 MG, 2X/DAY (DOSAGE: 1-0-1 BEFORE MEALS, DURATION 10 DAYS)
  4. FOLVITE [FOLIC ACID] [Concomitant]
     Dosage: 5 MG, 2X/DAY (DOSAGE: 1-0-1 DURATION: 10 DAYS)

REACTIONS (2)
  - General physical condition abnormal [Unknown]
  - Hyperchlorhydria [Unknown]
